FAERS Safety Report 9688977 (Version 2)
Quarter: 2013Q4

REPORT INFORMATION
  Report Type: Spontaneous
  Country: DE (occurrence: None)
  Receive Date: 20131112
  Receipt Date: 20131226
  Transmission Date: 20140711
  Serious: Yes (Other)
  Sender: FDA-Public Use
  Company Number: 1310-1393

PATIENT
  Age: 84 Year
  Sex: Male

DRUGS (8)
  1. VEGF TRAP-EYE [Suspect]
     Indication: AGE-RELATED MACULAR DEGENERATION
     Dosage: 2 MG, 1 IN 1 M
     Route: 031
  2. ATORVASTATIN (ATORVASTATIN) [Concomitant]
  3. FLUIMUCIL (ACETYLCYSTEINE) [Concomitant]
  4. ASPIRIN CARDIO [Concomitant]
  5. LYRICA (PREGABALIN) [Concomitant]
  6. SERETIDE DISKUS (SERETIDE) [Concomitant]
  7. NASONEX (MOMETASONE FUROATE) [Concomitant]
  8. PLAVIX (CLOPIDOGREL BISULFATE) (CLOPIDOGREL BISULFATE) [Concomitant]

REACTIONS (1)
  - Retinal haemorrhage [None]
